FAERS Safety Report 23878924 (Version 2)
Quarter: 2025Q1

REPORT INFORMATION
  Report Type: Spontaneous
  Country: US (occurrence: US)
  Receive Date: 20240521
  Receipt Date: 20250314
  Transmission Date: 20250409
  Serious: No
  Sender: TEVA
  Company Number: US-TEVA-VS-3198151

PATIENT
  Age: 49 Year
  Sex: Male
  Weight: 78.47 kg

DRUGS (2)
  1. AUSTEDO [Suspect]
     Active Substance: DEUTETRABENAZINE
     Indication: Huntington^s disease
     Dosage: 9 MG 3 TABLETS
     Route: 048
  2. AUSTEDO [Suspect]
     Active Substance: DEUTETRABENAZINE
     Indication: Huntington^s disease
     Dosage: 12 MG 3 TABLETS
     Route: 048

REACTIONS (3)
  - Off label use [Unknown]
  - Product dose omission issue [Unknown]
  - Headache [Unknown]
